FAERS Safety Report 6161335-8 (Version None)
Quarter: 2009Q2

REPORT INFORMATION
  Report Type: 
  Country: None (occurrence: None)
  Receive Date: 20090421
  Receipt Date: 20070405
  Transmission Date: 20091009
  Serious: Yes (Hospitalization, Disabling)
  Sender: FDA-Public Use
  Company Number: US-ASTRAZENECA-2006UW22572

PATIENT
  Age: 15612 Day
  Sex: Female
  Weight: 70 kg

DRUGS (22)
  1. SEROQUEL [Suspect]
     Indication: DEPRESSION
     Route: 048
     Dates: start: 20041001
  2. SEROQUEL [Suspect]
     Indication: ANXIETY
     Route: 048
     Dates: start: 20041001
  3. ATENOLOL [Concomitant]
  4. DOLASETRON [Concomitant]
  5. DURAGESIC-100 [Concomitant]
  6. EFFEXOR [Concomitant]
  7. HALOPERIDOL [Concomitant]
  8. LANTUS [Concomitant]
  9. LEVOTHYROXINE SODIUM [Concomitant]
  10. LORAZEPAM [Concomitant]
  11. NEURONTIN [Concomitant]
  12. NICOTINE [Concomitant]
  13. NYSTATIN [Concomitant]
  14. OXYCONTIN [Concomitant]
  15. PREDNISONE [Concomitant]
  16. ROBAXIN [Concomitant]
  17. SYNTHROID [Concomitant]
  18. THIAMINE HCL [Concomitant]
  19. ULTRACET [Concomitant]
  20. VIOXX [Concomitant]
  21. WELLBUTRIN SR [Concomitant]
  22. ZANAFLEX [Concomitant]

REACTIONS (22)
  - ABDOMINAL PAIN [None]
  - DEHYDRATION [None]
  - DYSPHAGIA [None]
  - DYSPNOEA [None]
  - ENCEPHALOPATHY [None]
  - GASTROENTERITIS VIRAL [None]
  - GENERALISED ANXIETY DISORDER [None]
  - HYPERCALCAEMIA [None]
  - HYPERGLYCAEMIA [None]
  - HYPERTENSION [None]
  - HYPOKALAEMIA [None]
  - HYPONATRAEMIA [None]
  - HYPOTHYROIDISM [None]
  - ILL-DEFINED DISORDER [None]
  - METABOLIC ACIDOSIS [None]
  - OEDEMA PERIPHERAL [None]
  - OVERDOSE [None]
  - PANCREATITIS ACUTE [None]
  - PNEUMONIA [None]
  - TACHYCARDIA [None]
  - URINARY TRACT INFECTION ENTEROCOCCAL [None]
  - WHEEZING [None]
